FAERS Safety Report 19807531 (Version 1)
Quarter: 2021Q3

REPORT INFORMATION
  Report Type: Spontaneous
  Country: US (occurrence: US)
  Receive Date: 20210908
  Receipt Date: 20210908
  Transmission Date: 20211014
  Serious: Yes (Other)
  Sender: FDA-Public Use
  Company Number: None

PATIENT
  Age: 46 Year
  Sex: Male
  Weight: 85.5 kg

DRUGS (1)
  1. CASIRIVIMAB?IMDEVIMAB [Suspect]
     Active Substance: CASIRIVIMAB\IMDEVIMAB
     Indication: COVID-19
     Route: 041

REACTIONS (6)
  - Hyperhidrosis [None]
  - Infusion related reaction [None]
  - Flushing [None]
  - Blood pressure decreased [None]
  - Confusional state [None]
  - Heart rate increased [None]

NARRATIVE: CASE EVENT DATE: 20210908
